FAERS Safety Report 4277278-0 (Version None)
Quarter: 2004Q1

REPORT INFORMATION
  Report Type: 
  Country: None (occurrence: None)
  Receive Date: 20040120
  Receipt Date: 20040108
  Transmission Date: 20041129
  Serious: Yes (Death)
  Sender: FDA-Public Use
  Company Number: IE-JNJFOC-20040101475

PATIENT

DRUGS (4)
  1. REOPRO [Suspect]
     Indication: CORONARY ANGIOPLASTY
     Dates: start: 20030101
  2. CLOPIDOGREL BISULFATE [Concomitant]
  3. ASPIRIN [Concomitant]
  4. HEPARIN [Concomitant]

REACTIONS (7)
  - ARTERY DISSECTION [None]
  - CARDIAC ARREST [None]
  - CARDIOGENIC SHOCK [None]
  - CORONARY ARTERY OCCLUSION [None]
  - CORONARY ARTERY THROMBOSIS [None]
  - MYOCARDIAL INFARCTION [None]
  - POST PROCEDURAL COMPLICATION [None]
